FAERS Safety Report 25451837 (Version 2)
Quarter: 2025Q3

REPORT INFORMATION
  Report Type: Spontaneous
  Country: US (occurrence: US)
  Receive Date: 20250618
  Receipt Date: 20250707
  Transmission Date: 20251021
  Serious: No
  Sender: SANOFI AVENTIS
  Company Number: US-SA-2025SA171278

PATIENT
  Age: 85 Year
  Sex: Male
  Weight: 123.64 kg

DRUGS (20)
  1. DUPIXENT [Suspect]
     Active Substance: DUPILUMAB
     Indication: Neurodermatitis
     Route: 058
  2. DUPIXENT [Suspect]
     Active Substance: DUPILUMAB
     Dosage: 300 MG, QOW
     Route: 058
  3. OMEPRAZOLE [Concomitant]
     Active Substance: OMEPRAZOLE
  4. KETOCONAZOLE [Concomitant]
     Active Substance: KETOCONAZOLE
  5. DICLOFENAC SODIUM [Concomitant]
     Active Substance: DICLOFENAC SODIUM
  6. JARDIANCE [Concomitant]
     Active Substance: EMPAGLIFLOZIN
  7. DULOXETINE [Concomitant]
     Active Substance: DULOXETINE
  8. TORSEMIDE [Concomitant]
     Active Substance: TORSEMIDE
  9. ALBUTEROL SULFATE [Concomitant]
     Active Substance: ALBUTEROL SULFATE
  10. TRELEGY ELLIPTA [Concomitant]
     Active Substance: FLUTICASONE FUROATE\UMECLIDINIUM BROMIDE\VILANTEROL TRIFENATATE
  11. ATENOLOL [Concomitant]
     Active Substance: ATENOLOL
  12. METHYLPREDNISOLONE [Concomitant]
     Active Substance: METHYLPREDNISOLONE
  13. SIMVASTATIN [Concomitant]
     Active Substance: SIMVASTATIN
  14. FLUTICASONE PROPIONATE [Concomitant]
     Active Substance: FLUTICASONE PROPIONATE
  15. SODIUM FLUORIDE [Concomitant]
     Active Substance: SODIUM FLUORIDE
  16. CHLORHEXIDINE GLUCONATE [Concomitant]
     Active Substance: CHLORHEXIDINE GLUCONATE
  17. LOSARTAN POTASSIUM [Concomitant]
     Active Substance: LOSARTAN POTASSIUM
  18. TENORMIN [Concomitant]
     Active Substance: ATENOLOL
  19. PROAIR RESPICLICK [Concomitant]
     Active Substance: ALBUTEROL SULFATE
  20. POTASSIUM CHLORIDE [Concomitant]
     Active Substance: POTASSIUM CHLORIDE

REACTIONS (3)
  - Rash erythematous [Not Recovered/Not Resolved]
  - Skin swelling [Not Recovered/Not Resolved]
  - Vision blurred [Unknown]

NARRATIVE: CASE EVENT DATE: 20250620
